FAERS Safety Report 19591042 (Version 1)
Quarter: 2021Q3

REPORT INFORMATION
  Report Type: Report from Study
  Country: US (occurrence: US)
  Receive Date: 20210721
  Receipt Date: 20210721
  Transmission Date: 20211014
  Serious: Yes (Hospitalization)
  Sender: FDA-Public Use
  Company Number: US-ASTRAZENECA-2019SF81673

PATIENT
  Sex: Female
  Weight: 59.9 kg

DRUGS (6)
  1. METOPROLOL. [Concomitant]
     Active Substance: METOPROLOL
  2. SIMVASTATIN. [Concomitant]
     Active Substance: SIMVASTATIN
  3. SYMBICORT [Suspect]
     Active Substance: BUDESONIDE\FORMOTEROL FUMARATE DIHYDRATE
     Indication: CHRONIC OBSTRUCTIVE PULMONARY DISEASE
     Route: 055
  4. ESCITALOPRAM [Concomitant]
     Active Substance: ESCITALOPRAM OXALATE
  5. OXYGEN. [Concomitant]
     Active Substance: OXYGEN
  6. ALPRAZOLAM. [Concomitant]
     Active Substance: ALPRAZOLAM

REACTIONS (10)
  - Loss of consciousness [Unknown]
  - Productive cough [Unknown]
  - Product dose omission issue [Not Recovered/Not Resolved]
  - Memory impairment [Unknown]
  - Fall [Unknown]
  - Sinus disorder [Unknown]
  - Hip fracture [Unknown]
  - Hypoacusis [Unknown]
  - Wheezing [Unknown]
  - Sinusitis [Unknown]
